FAERS Safety Report 18540381 (Version 1)
Quarter: 2020Q4

REPORT INFORMATION
  Report Type: Spontaneous
  Country: CN (occurrence: CN)
  Receive Date: 20201124
  Receipt Date: 20201124
  Transmission Date: 20210114
  Serious: Yes (Other)
  Sender: FDA-Public Use
  Company Number: CN-PFIZER INC-2020457571

PATIENT
  Age: 34 Year
  Sex: Female
  Weight: 59.9 kg

DRUGS (4)
  1. ZITHROMAX [Suspect]
     Active Substance: AZITHROMYCIN DIHYDRATE
     Indication: ANTIBIOTIC PROPHYLAXIS
  2. SODIUM CHLORIDE. [Concomitant]
     Active Substance: SODIUM CHLORIDE
     Indication: ANTIBIOTIC PROPHYLAXIS
  3. ZITHROMAX [Suspect]
     Active Substance: AZITHROMYCIN DIHYDRATE
     Indication: ABORTION INDUCED
     Dosage: 0.5 G, 1X/DAY
     Route: 041
     Dates: start: 20201022, end: 20201022
  4. SODIUM CHLORIDE. [Concomitant]
     Active Substance: SODIUM CHLORIDE
     Indication: ABORTION INDUCED
     Dosage: 250 ML, 1X/DAY
     Route: 041
     Dates: start: 20201022, end: 20201022

REACTIONS (6)
  - Maternal exposure during pregnancy [Unknown]
  - Chest discomfort [Recovered/Resolved]
  - Asthma [Recovered/Resolved]
  - Product use in unapproved indication [Unknown]
  - Dizziness [Recovered/Resolved]
  - Off label use [Unknown]

NARRATIVE: CASE EVENT DATE: 20201022
